FAERS Safety Report 6305438-3 (Version None)
Quarter: 2009Q3

REPORT INFORMATION
  Report Type: 
  Country: None (occurrence: None)
  Receive Date: 20090811
  Receipt Date: 20090729
  Transmission Date: 20100115
  Serious: Yes (Other)
  Sender: FDA-Public Use
  Company Number: US-ELI_LILLY_AND_COMPANY-US200908001658

PATIENT
  Sex: Female

DRUGS (11)
  1. HUMALOG [Suspect]
     Indication: TYPE 2 DIABETES MELLITUS
     Dosage: 34 U, DAILY (1/D)
     Dates: start: 20090415
  2. PROTAPHAN [Concomitant]
     Indication: TYPE 2 DIABETES MELLITUS
     Dosage: 50 U, DAILY (1/D)
     Dates: start: 20050315
  3. PLACEBO [Concomitant]
     Indication: TYPE 2 DIABETES MELLITUS
     Dates: start: 20081029
  4. ARIFON [Concomitant]
     Dates: start: 20090121
  5. ACCUPRO [Concomitant]
     Dates: start: 20090218
  6. NORMODIPINE [Concomitant]
  7. ASPIRIN [Concomitant]
     Dates: start: 20081015
  8. HYDROCHLORZIDE [Concomitant]
     Dosage: UNK, UNK
     Dates: start: 20090121
  9. ATORVASTATIN [Concomitant]
     Dates: start: 20090602
  10. PHYSIOTENS [Concomitant]
  11. ACTRAPID /00030501/ [Concomitant]

REACTIONS (4)
  - ASTHENIA [None]
  - DIZZINESS [None]
  - HYPOGLYCAEMIC COMA [None]
  - SYNCOPE [None]
